FAERS Safety Report 17712456 (Version 1)
Quarter: 2020Q2

REPORT INFORMATION
  Report Type: Spontaneous
  Country: GB (occurrence: GB)
  Receive Date: 20200427
  Receipt Date: 20200427
  Transmission Date: 20200714
  Serious: Yes (Hospitalization)
  Sender: FDA-Public Use
  Company Number: GB-VERTEX PHARMACEUTICALS-2020-009553

PATIENT
  Sex: Male

DRUGS (2)
  1. TOBI PODHALER [Concomitant]
     Active Substance: TOBRAMYCIN
     Dosage: IV MEDICATION
     Route: 042
  2. KALYDECO [Suspect]
     Active Substance: IVACAFTOR
     Indication: CYSTIC FIBROSIS
     Dosage: 150 MG, BID
     Route: 048
     Dates: start: 2019

REACTIONS (2)
  - Back pain [Unknown]
  - Asthenia [Unknown]
